FAERS Safety Report 4525096-8 (Version None)
Quarter: 2004Q4

REPORT INFORMATION
  Report Type: 
  Country: None (occurrence: None)
  Receive Date: 20041116
  Receipt Date: 20040913
  Transmission Date: 20050328
  Serious: No
  Sender: FDA-Public Use
  Company Number: S04-USA-06145-01

PATIENT
  Age: 79 Year
  Sex: Female

DRUGS (7)
  1. NAMENDA [Suspect]
     Indication: AMNESIA
     Dosage: 5 MG QD PO
     Route: 048
     Dates: start: 20040901, end: 20040901
  2. PLAVIX [Concomitant]
  3. ASACOL [Concomitant]
  4. IMODIUM [Concomitant]
  5. PREVACID [Concomitant]
  6. SINEMET [Concomitant]
  7. WELLBUTRIN [Concomitant]

REACTIONS (1)
  - NAUSEA [None]
